FAERS Safety Report 10098683 (Version 1)
Quarter: 2014Q2

REPORT INFORMATION
  Report Type: Spontaneous
  Country: US (occurrence: US)
  Receive Date: 20140423
  Receipt Date: 20140423
  Transmission Date: 20141212
  Serious: Yes (Hospitalization)
  Sender: FDA-Public Use
  Company Number: US-BAYER-2014-057848

PATIENT
  Age: 33 Year
  Sex: Female

DRUGS (26)
  1. YAZ [Suspect]
  2. YASMIN [Suspect]
  3. OCELLA [Suspect]
     Dosage: UNK
  4. IBUPROFEN [Concomitant]
     Indication: HEADACHE
  5. ALEVE [Concomitant]
  6. ADVAIR [Concomitant]
  7. LYRICA [Concomitant]
  8. CYMBALTA [Concomitant]
  9. GABAPENTIN [Concomitant]
  10. AMITRIPTYLINE HCL [Concomitant]
     Dosage: 10 MG, UNK
     Route: 048
  11. ONDANSETRON HYDROCHLORIDE [Concomitant]
     Dosage: 2 MG, UNK
  12. HYDROXYZINE HCL [Concomitant]
     Dosage: 50 MG, UNK
  13. KETOROLAC TROMETHAMINE [Concomitant]
     Dosage: 60 MG, UNK
  14. CLOPIDOGREL BISULFATE [Concomitant]
     Dosage: 75 MG, QD
     Route: 048
  15. SIMVASTATIN [Concomitant]
     Dosage: 10 MG, UNK
     Route: 048
  16. BUTALBITAL, ACETAMINOPHEN + CAFFEINE [Concomitant]
     Indication: PAIN
     Dosage: 4 MG, QD
     Route: 048
  17. ZOFRAN [Concomitant]
     Dosage: 4 MG, EVERY 6 HOURS PRN
     Route: 048
  18. TOPAMAX [Concomitant]
  19. XANAX [Concomitant]
  20. FLUOXETINE [Concomitant]
     Dosage: 20 MG, UNK
  21. NEXIUM [Concomitant]
  22. CLONAZEPAM [Concomitant]
     Dosage: 1 MG, HS
  23. PLAVIX [Concomitant]
     Dosage: 75 MG, EVERY DAY
     Route: 048
  24. AZITHROMYCIN [Concomitant]
  25. DEPO-PROVERA [Concomitant]
     Dosage: 150 MG/ML, INJECT 1 ML EVERY 3 MONTHS
  26. KENALOG [Concomitant]
     Dosage: 40 MG/ML, UNK

REACTIONS (1)
  - Cerebrovascular accident [None]
